FAERS Safety Report 24693951 (Version 1)
Quarter: 2024Q4

REPORT INFORMATION
  Report Type: Spontaneous
  Country: US (occurrence: US)
  Receive Date: 20241204
  Receipt Date: 20241204
  Transmission Date: 20250115
  Serious: No
  Sender: PACIRA
  Company Number: US-ORG100016242-2024000067

PATIENT
  Age: 56 Year
  Sex: Male

DRUGS (1)
  1. ZILRETTA [Suspect]
     Active Substance: TRIAMCINOLONE ACETONIDE
     Indication: Arthralgia
     Dosage: SINGLE DOSE KIT EVERY 4 MONTHS, RIGHT KNEE
     Route: 050

REACTIONS (1)
  - Knee arthroplasty [Not Recovered/Not Resolved]
